FAERS Safety Report 17559454 (Version 2)
Quarter: 2020Q1

REPORT INFORMATION
  Report Type: Spontaneous
  Country: CN (occurrence: CN)
  Receive Date: 20200319
  Receipt Date: 20200319
  Transmission Date: 20200409
  Serious: Yes (Other)
  Sender: FDA-Public Use
  Company Number: CN-GLAXOSMITHKLINE-CN2020APC046245

PATIENT
  Sex: Male

DRUGS (2)
  1. PULMICORT RESPULES [Concomitant]
     Active Substance: BUDESONIDE
     Indication: BRONCHITIS
     Dosage: 2 ML, QD
  2. VENTOLIN [Suspect]
     Active Substance: ALBUTEROL SULFATE
     Indication: BRONCHITIS
     Dosage: 2.5 ML, QD
     Dates: start: 20200225, end: 20200225

REACTIONS (4)
  - Palpitations [Recovered/Resolved]
  - Heart rate increased [Recovered/Resolved]
  - Pyrexia [Recovered/Resolved]
  - Hypersensitivity [Recovered/Resolved]
